FAERS Safety Report 6408542-4 (Version None)
Quarter: 2009Q4

REPORT INFORMATION
  Report Type: 
  Country: None (occurrence: None)
  Receive Date: 20091021
  Receipt Date: 20091012
  Transmission Date: 20100525
  Serious: Yes (Other)
  Sender: FDA-Public Use
  Company Number: US-ASTRAZENECA-2009SE19697

PATIENT
  Age: 81 Year
  Sex: Female
  Weight: 53.5 kg

DRUGS (9)
  1. NEXIUM [Suspect]
     Route: 048
     Dates: start: 20040101
  2. PLAVIX [Concomitant]
  3. LISINOPRIL [Concomitant]
  4. ATENOLOL [Concomitant]
  5. CELEBREX [Concomitant]
  6. CRESTOR [Concomitant]
  7. ISOSORBIDE [Concomitant]
  8. OXYBUTYNIN CHLORIDE [Concomitant]
  9. ALENDRONATE SODIUM [Concomitant]

REACTIONS (4)
  - ANGINA PECTORIS [None]
  - CATARACT OPERATION [None]
  - CORONARY ARTERY STENOSIS [None]
  - HIP ARTHROPLASTY [None]
